FAERS Safety Report 21761469 (Version 1)
Quarter: 2022Q4

REPORT INFORMATION
  Report Type: Spontaneous
  Country: JP (occurrence: JP)
  Receive Date: 20221221
  Receipt Date: 20221221
  Transmission Date: 20230113
  Serious: Yes (Other)
  Sender: FDA-Public Use
  Company Number: JP-Merck Healthcare KGaA-9372449

PATIENT
  Age: 59 Year
  Sex: Male

DRUGS (3)
  1. ERBITUX [Suspect]
     Active Substance: CETUXIMAB
     Indication: Neoplasm of appendix
     Dosage: UNK, UNKNOWN
     Route: 041
  2. ENCORAFENIB [Concomitant]
     Active Substance: ENCORAFENIB
     Indication: Neoplasm of appendix
     Dosage: UNK, UNKNOWN
     Route: 065
  3. BINIMETINIB [Concomitant]
     Active Substance: BINIMETINIB
     Indication: Neoplasm of appendix
     Dosage: UNK, UNKNOWN
     Route: 065

REACTIONS (2)
  - Hypersensitivity [Unknown]
  - Off label use [Unknown]
